FAERS Safety Report 8125019-9 (Version None)
Quarter: 2012Q1

REPORT INFORMATION
  Report Type: 
  Country: None (occurrence: None)
  Receive Date: 20120209
  Receipt Date: 20120207
  Transmission Date: 20120608
  Serious: Yes (Death, Life-Threatening, Hospitalization, Other)
  Sender: FDA-Public Use
  Company Number: US-ACTELION-A-NJ2010-42702

PATIENT

DRUGS (3)
  1. TRACLEER [Suspect]
     Indication: PULMONARY ARTERIAL HYPERTENSION
     Dosage: 125 MG, UNK
     Route: 048
     Dates: start: 20060221, end: 20120112
  2. COUMADIN [Concomitant]
  3. REVATIO [Concomitant]

REACTIONS (14)
  - ENDOTRACHEAL INTUBATION [None]
  - PULMONARY HAEMORRHAGE [None]
  - DIALYSIS [None]
  - PNEUMONIA [None]
  - DYSPNOEA [None]
  - RESPIRATORY FAILURE [None]
  - PULMONARY ARTERIAL HYPERTENSION [None]
  - MECHANICAL VENTILATION [None]
  - PULMONARY OEDEMA [None]
  - SEPSIS [None]
  - RENAL FAILURE ACUTE [None]
  - SWELLING [None]
  - POST PROCEDURAL HAEMORRHAGE [None]
  - CARDIAC FAILURE CONGESTIVE [None]
